FAERS Safety Report 7035366-X (Version None)
Quarter: 2010Q4

REPORT INFORMATION
  Report Type: 
  Country: None (occurrence: None)
  Receive Date: 20101008
  Receipt Date: 20100920
  Transmission Date: 20110411
  Serious: Yes (Other)
  Sender: FDA-Public Use
  Company Number: US-PFIZER INC-2007094208

PATIENT
  Sex: Female
  Weight: 48.073 kg

DRUGS (11)
  1. LIPITOR [Suspect]
     Indication: BLOOD CHOLESTEROL INCREASED
     Dosage: 10 MG, 1X/DAY
     Route: 048
     Dates: start: 20020101
  2. LIPITOR [Suspect]
     Dosage: UNK
     Route: 048
     Dates: start: 20020101
  3. MONTELUKAST SODIUM [Suspect]
     Indication: ASTHMA
     Dosage: UNK
     Route: 048
     Dates: start: 20070101, end: 20100714
  4. ADVAIR DISKUS 100/50 [Concomitant]
  5. PREVACID [Concomitant]
  6. LISINOPRIL [Concomitant]
     Indication: HYPERTENSION
  7. PLAVIX [Concomitant]
     Dosage: 75 MG, UNK
  8. VITAMINS [Concomitant]
  9. CALCIUM [Concomitant]
  10. SYMBICORT [Concomitant]
     Indication: ASTHMA
     Dosage: UNK
  11. PROTONIX [Concomitant]
     Dosage: UNK

REACTIONS (6)
  - BLOOD CHOLESTEROL INCREASED [None]
  - DIARRHOEA [None]
  - LIPIDS ABNORMAL [None]
  - NAUSEA [None]
  - VOMITING [None]
  - WITHDRAWAL SYNDROME [None]
